FAERS Safety Report 23355874 (Version 1)
Quarter: 2024Q1

REPORT INFORMATION
  Report Type: Spontaneous
  Country: CN (occurrence: CN)
  Receive Date: 20240102
  Receipt Date: 20240102
  Transmission Date: 20240410
  Serious: Yes (Hospitalization, Other)
  Sender: FDA-Public Use
  Company Number: CN-Merck Healthcare KGaA-2023496796

PATIENT
  Age: 35 Year
  Sex: Female
  Weight: 67 kg

DRUGS (3)
  1. OVIDREL [Suspect]
     Active Substance: CHORIOGONADOTROPIN ALFA
     Indication: Ovulation induction
     Route: 058
     Dates: start: 20230403, end: 20230403
  2. DYDROGESTERONE [Concomitant]
     Active Substance: DYDROGESTERONE
     Indication: Luteal phase deficiency
     Route: 048
     Dates: start: 20230405
  3. PROGESTERONE [Concomitant]
     Active Substance: PROGESTERONE
     Indication: Luteal phase deficiency
     Dosage: SUSTAIN RELEASE GEL
     Route: 067
     Dates: start: 20230405

REACTIONS (1)
  - Abdominal distension [Recovering/Resolving]

NARRATIVE: CASE EVENT DATE: 20230408
